FAERS Safety Report 16628262 (Version 2)
Quarter: 2019Q3

REPORT INFORMATION
  Report Type: Spontaneous
  Country: JP (occurrence: JP)
  Receive Date: 20190724
  Receipt Date: 20190724
  Transmission Date: 20191004
  Serious: Yes (Death, Other)
  Sender: FDA-Public Use
  Company Number: PHJP2019JP009686

PATIENT
  Age: 49 Year
  Sex: Female

DRUGS (3)
  1. PREDNISOLONE. [Concomitant]
     Active Substance: PREDNISOLONE
     Indication: GRAFT VERSUS HOST DISEASE
     Dosage: 2 MG/KG, UNK
     Route: 065
  2. PREDNISOLONE. [Concomitant]
     Active Substance: PREDNISOLONE
     Dosage: UNK
     Route: 065
  3. CICLOSPORIN [Suspect]
     Active Substance: CYCLOSPORINE
     Indication: GRAFT VERSUS HOST DISEASE
     Dosage: UNK
     Route: 065

REACTIONS (10)
  - Brain stem haemorrhage [Fatal]
  - White matter lesion [Fatal]
  - Viral infection [Unknown]
  - Cardio-respiratory arrest [Fatal]
  - Subarachnoid haemorrhage [Fatal]
  - Brain stem syndrome [Fatal]
  - Product use in unapproved indication [Unknown]
  - Cardiac failure [Fatal]
  - Respiratory failure [Fatal]
  - Pneumonia [Unknown]
